FAERS Safety Report 4387961-4 (Version None)
Quarter: 2004Q2

REPORT INFORMATION
  Report Type: 
  Country: None (occurrence: None)
  Receive Date: 20040607
  Receipt Date: 20040129
  Transmission Date: 20050107
  Serious: Yes (Other)
  Sender: FDA-Public Use
  Company Number: 357729

PATIENT

DRUGS (2)
  1. ACCUTANE [Suspect]
     Indication: ACNE
     Dates: start: 20030115, end: 20030522
  2. VITAMINS (MULTIVITAMIN NOS) [Concomitant]

REACTIONS (2)
  - ABORTION SPONTANEOUS [None]
  - ADVERSE EVENT [None]
